FAERS Safety Report 14403081 (Version 1)
Quarter: 2018Q1

REPORT INFORMATION
  Report Type: Spontaneous
  Country: FR (occurrence: FR)
  Receive Date: 20180117
  Receipt Date: 20180117
  Transmission Date: 20180509
  Serious: Yes (Death)
  Sender: FDA-Public Use
  Company Number: FR-CONCORDIA PHARMACEUTICALS INC.-GSH201801-000215

PATIENT
  Age: 86 Year
  Sex: Male

DRUGS (3)
  1. NILUTAMIDE TABLET 150 MG [Suspect]
     Active Substance: NILUTAMIDE
     Indication: PROSTATE CANCER
     Route: 048
     Dates: start: 201708, end: 20171009
  2. DECAPEPTYL [Concomitant]
     Active Substance: TRIPTORELIN
  3. APROVEL [Concomitant]
     Active Substance: IRBESARTAN

REACTIONS (1)
  - Interstitial lung disease [Fatal]

NARRATIVE: CASE EVENT DATE: 20171009
